FAERS Safety Report 4585512-2 (Version None)
Quarter: 2005Q1

REPORT INFORMATION
  Report Type: 
  Country: None (occurrence: None)
  Receive Date: 20050217
  Receipt Date: 20050214
  Transmission Date: 20050727
  Serious: Yes (Life-Threatening, Hospitalization)
  Sender: FDA-Public Use
  Company Number: PHRM2005FR00801

PATIENT
  Age: 48 Year
  Sex: Female

DRUGS (6)
  1. DEPAKENE [Suspect]
     Indication: STATUS EPILEPTICUS
     Route: 048
     Dates: start: 20050117, end: 20050118
  2. RIVOTRIL [Suspect]
     Indication: STATUS EPILEPTICUS
     Route: 042
     Dates: start: 20050117, end: 20050118
  3. AUGMENTIN [Suspect]
  4. BETASERON [Suspect]
     Indication: MULTIPLE SCLEROSIS
     Route: 058
     Dates: end: 20050116
  5. PRODILANTIN [Suspect]
     Indication: STATUS EPILEPTICUS
     Dosage: UNK, UNK
     Route: 042
     Dates: start: 20050117, end: 20050119
  6. TRILEPTAL [Suspect]
     Indication: EPILEPSY
     Dosage: 600 MG, BID
     Route: 048
     Dates: start: 20030101, end: 20050119

REACTIONS (7)
  - ALANINE AMINOTRANSFERASE INCREASED [None]
  - ASPARTATE AMINOTRANSFERASE INCREASED [None]
  - COAGULATION FACTOR V LEVEL DECREASED [None]
  - GAMMA-GLUTAMYLTRANSFERASE INCREASED [None]
  - HEPATITIS FULMINANT [None]
  - PROTHROMBIN LEVEL DECREASED [None]
  - STATUS EPILEPTICUS [None]
